FAERS Safety Report 21735864 (Version 1)
Quarter: 2022Q4

REPORT INFORMATION
  Report Type: Spontaneous
  Country: DE (occurrence: DE)
  Receive Date: 20221215
  Receipt Date: 20221215
  Transmission Date: 20230112
  Serious: Yes (Hospitalization)
  Sender: FDA-Public Use
  Company Number: DE-002147023-NVSC2022DE289428

PATIENT
  Age: 9 Year
  Sex: Female

DRUGS (2)
  1. EXJADE [Suspect]
     Active Substance: DEFERASIROX
     Indication: Product used for unknown indication
     Dosage: STRENGTH-90 MG, UNKNOWN
     Route: 065
  2. EXJADE [Suspect]
     Active Substance: DEFERASIROX
     Dosage: STRENGTH-180 MG, UNKNOWN
     Route: 065

REACTIONS (3)
  - Decreased appetite [Unknown]
  - Intentional dose omission [Unknown]
  - Wrong technique in product usage process [Unknown]
